FAERS Safety Report 5559470-8 (Version None)
Quarter: 2007Q4

REPORT INFORMATION
  Report Type: 
  Country: None (occurrence: None)
  Receive Date: 20071214
  Receipt Date: 20070928
  Transmission Date: 20080405
  Serious: No
  Sender: FDA-Public Use
  Company Number: US-ABBOTT-07P-163-0419550-00

PATIENT
  Sex: Female
  Weight: 61.29 kg

DRUGS (8)
  1. HUMIRA [Suspect]
     Indication: CROHN'S DISEASE
     Route: 058
     Dates: start: 20070601
  2. HUMIRA [Suspect]
     Route: 058
     Dates: start: 20070917
  3. MESALAMINE [Concomitant]
     Indication: CROHN'S DISEASE
  4. VITAMINS [Concomitant]
     Indication: DRUG USE FOR UNKNOWN INDICATION
  5. DICYCLOMINE HCL [Concomitant]
     Indication: ABDOMINAL RIGIDITY
  6. DICYCLOMINE HCL [Concomitant]
     Indication: MUSCLE SPASMS
  7. PROPACET 100 [Concomitant]
     Indication: DRUG USE FOR UNKNOWN INDICATION
  8. AMYTRIPTYLINE [Concomitant]
     Indication: HEADACHE

REACTIONS (8)
  - CROHN'S DISEASE [None]
  - INJECTION SITE ERYTHEMA [None]
  - INJECTION SITE SWELLING [None]
  - INJECTION SITE URTICARIA [None]
  - INJECTION SITE WARMTH [None]
  - RECTAL HAEMORRHAGE [None]
  - SKIN NODULE [None]
  - SKIN SWELLING [None]
